FAERS Safety Report 11216520 (Version 1)
Quarter: 2015Q2

REPORT INFORMATION
  Report Type: Spontaneous
  Country: MY (occurrence: MY)
  Receive Date: 20150624
  Receipt Date: 20150624
  Transmission Date: 20150821
  Serious: Yes (Other)
  Sender: FDA-Public Use
  Company Number: MY-BAYER-2015-360830

PATIENT
  Sex: Male

DRUGS (2)
  1. NEXAVAR FILM-COATED TABLETS 200MG [Suspect]
     Active Substance: SORAFENIB
     Indication: HEPATOCELLULAR CARCINOMA
     Dosage: REDUCED DOSE
  2. NEXAVAR FILM-COATED TABLETS 200MG [Suspect]
     Active Substance: SORAFENIB
     Indication: HEPATOCELLULAR CARCINOMA
     Dosage: 400 MG, BID

REACTIONS (2)
  - Skin toxicity [Unknown]
  - Hepatocellular carcinoma [None]
